FAERS Safety Report 25009600 (Version 1)
Quarter: 2025Q1

REPORT INFORMATION
  Report Type: Spontaneous
  Country: DE (occurrence: DE)
  Receive Date: 20250225
  Receipt Date: 20250225
  Transmission Date: 20250409
  Serious: Yes (Death)
  Sender: SENTYNL THERAPEUTICS, INC.
  Company Number: DE-Sentynl Therapeutics, Inc.-2171782

PATIENT
  Age: 0 Year
  Sex: Male

DRUGS (10)
  1. NULIBRY [Suspect]
     Active Substance: FOSDENOPTERIN HYDROBROMIDE
     Indication: Molybdenum cofactor deficiency
     Dates: start: 20250130
  2. PHENOBARBITAL [Concomitant]
     Active Substance: PHENOBARBITAL
     Dates: start: 20250129
  3. NOREPINEPHRINE [Concomitant]
     Active Substance: NOREPINEPHRINE
     Dates: start: 20250210
  4. EPINEPHRINE [Concomitant]
     Active Substance: EPINEPHRINE
     Dates: start: 20250210
  5. MIDAZOLAM [Concomitant]
     Active Substance: MIDAZOLAM
     Dates: start: 20250210
  6. VITAMIN D [Concomitant]
     Active Substance: VITAMIN D NOS
  7. THIAMINE [Concomitant]
     Active Substance: THIAMINE
     Dates: start: 20250131
  8. PYRIDOXINE HCI [Concomitant]
     Active Substance: PYRIDOXINE HYDROCHLORIDE
     Dates: start: 20250207
  9. TOPIRAMATE [Concomitant]
     Active Substance: TOPIRAMATE
     Dates: start: 20250205, end: 20250208
  10. LEVETIRACETAM [Concomitant]
     Active Substance: LEVETIRACETAM
     Dates: start: 20250131

REACTIONS (7)
  - Cardio-respiratory arrest [Fatal]
  - Vasoconstriction [Fatal]
  - Bradycardia [Fatal]
  - Hypothermia [Fatal]
  - Apnoea [Fatal]
  - Pyrexia [Fatal]
  - Product use in unapproved indication [Fatal]

NARRATIVE: CASE EVENT DATE: 20250210
